FAERS Safety Report 8767605 (Version 1)
Quarter: 2012Q4

REPORT INFORMATION
  Report Type: 
  Country: US (occurrence: US)
  Receive Date: 20120904
  Receipt Date: 20120904
  Transmission Date: 20130627
  Serious: No
  Sender: FDA-Public Use
  Company Number: US-PFIZER INC-2012215312

PATIENT
  Age: 59 Year
  Sex: Female
  Weight: 81.63 kg

DRUGS (9)
  1. LYRICA [Suspect]
     Indication: FIBROMYALGIA
     Dosage: 50 mg, 1x/day
     Route: 048
     Dates: start: 2012, end: 2012
  2. LYRICA [Suspect]
     Indication: NERVE INJURY
     Dosage: 50 mg, 3x/day
     Route: 048
     Dates: start: 2012, end: 2012
  3. LYRICA [Suspect]
     Indication: PROCEDURAL PAIN
     Dosage: total daily dose of 250mg
     Route: 048
     Dates: start: 2012, end: 2012
  4. LYRICA [Suspect]
     Dosage: 50 mg, 3x/day
     Route: 048
     Dates: start: 2012, end: 2012
  5. LYRICA [Suspect]
     Dosage: 50 mg, 1x/day
     Route: 048
     Dates: start: 2012, end: 2012
  6. LYRICA [Suspect]
     Dosage: 50 mg, every other day
     Route: 048
     Dates: start: 2012, end: 2012
  7. LYRICA [Suspect]
     Dosage: 50 mg, after every two days
     Route: 048
     Dates: start: 2012, end: 2012
  8. LYRICA [Suspect]
     Dosage: 50 mg, after every five to seven days
     Route: 048
     Dates: start: 2012, end: 2012
  9. LYRICA [Suspect]
     Dosage: 50 mg, 1x/day
     Route: 048
     Dates: start: 2012

REACTIONS (3)
  - Drug ineffective [Unknown]
  - Drug intolerance [Unknown]
  - Withdrawal syndrome [Unknown]
